FAERS Safety Report 5394504-5 (Version None)
Quarter: 2007Q3

REPORT INFORMATION
  Report Type: 
  Country: None (occurrence: None)
  Receive Date: 20070723
  Receipt Date: 20070716
  Transmission Date: 20080115
  Serious: Yes (Hospitalization, Other)
  Sender: FDA-Public Use
  Company Number: BR-ASTRAZENECA-2007UW14819

PATIENT
  Age: 39 Year
  Sex: Female

DRUGS (1)
  1. SEROQUEL [Suspect]
     Indication: SCHIZOPHRENIA
     Route: 048
     Dates: start: 20070618, end: 20070618

REACTIONS (4)
  - BLOOD PRESSURE DECREASED [None]
  - OVERDOSE [None]
  - OXYGEN SATURATION [None]
  - SUICIDE ATTEMPT [None]
